FAERS Safety Report 4910756-7 (Version None)
Quarter: 2006Q1

REPORT INFORMATION
  Report Type: 
  Country: None (occurrence: None)
  Receive Date: 20060214
  Receipt Date: 20060209
  Transmission Date: 20060701
  Serious: No
  Sender: FDA-Public Use
  Company Number: 2006PK00317

PATIENT
  Sex: Female

DRUGS (3)
  1. SEROQUEL [Suspect]
     Route: 048
  2. LITHIUM [Concomitant]
     Dosage: LONG TERM MEDICATION
  3. PIPAMPERONE [Concomitant]
     Dosage: LONG TERM MEDICATION

REACTIONS (1)
  - LEUKOPENIA [None]
